FAERS Safety Report 10891749 (Version 23)
Quarter: 2020Q3

REPORT INFORMATION
  Report Type: Report from Study
  Country: US (occurrence: US)
  Receive Date: 20150306
  Receipt Date: 20200729
  Transmission Date: 20201102
  Serious: Yes (Disabling, Other)
  Sender: FDA-Public Use
  Company Number: US-SA-2015SA027489

PATIENT

DRUGS (3)
  1. AZATHIOPRINE. [Concomitant]
     Active Substance: AZATHIOPRINE
     Dosage: UNK
     Route: 065
  2. ALEMTUZUMAB [Suspect]
     Active Substance: ALEMTUZUMAB
     Indication: MULTIPLE SCLEROSIS
     Dosage: 12 MG, QD
     Route: 041
     Dates: start: 20150316, end: 20150320
  3. REBIF [Suspect]
     Active Substance: INTERFERON BETA-1A
     Indication: MULTIPLE SCLEROSIS
     Dosage: UNK
     Route: 065
     Dates: start: 20110801, end: 20150316

REACTIONS (28)
  - Contusion [Unknown]
  - Rash [Recovering/Resolving]
  - Rehabilitation therapy [Recovered/Resolved]
  - Dysgraphia [Unknown]
  - Gait inability [Unknown]
  - Paraplegia [Not Recovered/Not Resolved]
  - Enuresis [Recovering/Resolving]
  - CD4 lymphocytes increased [Unknown]
  - Fatigue [Not Recovered/Not Resolved]
  - Accident [Not Recovered/Not Resolved]
  - Laboratory test abnormal [Unknown]
  - B-lymphocyte count increased [Unknown]
  - Dysstasia [Not Recovered/Not Resolved]
  - Urinary incontinence [Not Recovered/Not Resolved]
  - Drug ineffective [Unknown]
  - Mobility decreased [Not Recovered/Not Resolved]
  - Decreased appetite [Recovering/Resolving]
  - Coagulopathy [Not Recovered/Not Resolved]
  - Unevaluable event [Not Recovered/Not Resolved]
  - Feeling hot [Recovering/Resolving]
  - Musculoskeletal stiffness [Unknown]
  - Increased tendency to bruise [Unknown]
  - Hypertonic bladder [Not Recovered/Not Resolved]
  - Hypokinesia [Recovering/Resolving]
  - Memory impairment [Recovering/Resolving]
  - Headache [Recovering/Resolving]
  - Erythema [Recovering/Resolving]
  - Musculoskeletal disorder [Unknown]

NARRATIVE: CASE EVENT DATE: 20150320
